FAERS Safety Report 7034567-4 (Version None)
Quarter: 2010Q4

REPORT INFORMATION
  Report Type: 
  Country: None (occurrence: None)
  Receive Date: 20101008
  Receipt Date: 20100928
  Transmission Date: 20110411
  Serious: Yes (Other)
  Sender: FDA-Public Use
  Company Number: US-BRISTOL-MYERS SQUIBB COMPANY-15308067

PATIENT
  Sex: Male

DRUGS (3)
  1. TAXOL [Suspect]
     Dosage: 3 SESSIONS/12 WEEKS
  2. CARBOPLATIN [Suspect]
     Dosage: 3 SESSIONS/12 WEEKS
  3. EMCYT [Suspect]
     Dosage: 3 SESSIONS/12 WEEKS

REACTIONS (3)
  - DYSURIA [None]
  - GLOSSODYNIA [None]
  - POLYURIA [None]
